FAERS Safety Report 5655979-7 (Version None)
Quarter: 2008Q1

REPORT INFORMATION
  Report Type: 
  Country: None (occurrence: None)
  Receive Date: 20080307
  Receipt Date: 20080226
  Transmission Date: 20080703
  Serious: Yes (Other)
  Sender: FDA-Public Use
  Company Number: GB-PFIZER INC-2008018363

PATIENT
  Age: 80 Year
  Sex: Male

DRUGS (1)
  1. LYRICA [Suspect]
     Indication: NEUROPATHY PERIPHERAL
     Route: 048

REACTIONS (6)
  - BALANCE DISORDER [None]
  - DYSKINESIA [None]
  - RENAL IMPAIRMENT [None]
  - SYNCOPE [None]
  - TONGUE PARALYSIS [None]
  - TREMOR [None]
